FAERS Safety Report 4609081-3 (Version None)
Quarter: 2005Q2

REPORT INFORMATION
  Report Type: 
  Country: None (occurrence: None)
  Receive Date: 20050228
  Receipt Date: 20041117
  Transmission Date: 20051028
  Serious: Yes (Other)
  Sender: FDA-Public Use
  Company Number: US-JNJFOC-20041104771

PATIENT

DRUGS (1)
  1. RISPERDAL [Suspect]
     Indication: SCHIZOPHRENIA
     Dosage: 87.5 MG ; 100 MG  : 1 IN 1 WEEK, INTRA-MUSCULAR
     Route: 030

REACTIONS (2)
  - MEDICATION ERROR [None]
  - NEUROLEPTIC MALIGNANT SYNDROME [None]
